FAERS Safety Report 9659377 (Version 1)
Quarter: 2013Q4

REPORT INFORMATION
  Report Type: Spontaneous
  Country: US (occurrence: US)
  Receive Date: 20131031
  Receipt Date: 20131031
  Transmission Date: 20140711
  Serious: Yes (Other)
  Sender: FDA-Public Use
  Company Number: US-SHIRE-ALL1-2013-07380

PATIENT
  Age: 67 Year
  Sex: Female

DRUGS (3)
  1. VPRIV [Suspect]
     Indication: GAUCHER^S DISEASE
     Dosage: 60 IU/KG, 1X/2WKS
     Route: 041
     Dates: start: 20091001
  2. FORTEO [Concomitant]
     Indication: OSTEOPOROSIS
     Dosage: UNK UNK, UNKNOWN
     Route: 058
     Dates: start: 20110311
  3. CALCIUM VITAMIN D [Concomitant]
     Indication: OSTEOPOROSIS
     Dosage: UNK UNK, UNKNOWN
     Route: 048
     Dates: start: 2010

REACTIONS (1)
  - Renal cell carcinoma [Recovering/Resolving]
